FAERS Safety Report 18986631 (Version 1)
Quarter: 2021Q1

REPORT INFORMATION
  Report Type: Spontaneous
  Country: US (occurrence: US)
  Receive Date: 20210309
  Receipt Date: 20210309
  Transmission Date: 20210420
  Serious: Yes (Hospitalization)
  Sender: FDA-Public Use
  Company Number: None

PATIENT
  Age: 68 Year
  Sex: Male

DRUGS (1)
  1. CARFILZOMIB (CARFILZOMIB 30MG/VIL INJ) [Suspect]
     Active Substance: CARFILZOMIB
     Indication: NEOPLASM MALIGNANT
     Dates: start: 20201028, end: 20210222

REACTIONS (5)
  - Cardiomyopathy [None]
  - Tachycardia [None]
  - Dyspnoea [None]
  - Pulmonary hypertension [None]
  - Ejection fraction decreased [None]

NARRATIVE: CASE EVENT DATE: 20210108
